FAERS Safety Report 18962355 (Version 1)
Quarter: 2021Q1

REPORT INFORMATION
  Report Type: Spontaneous
  Country: JP (occurrence: JP)
  Receive Date: 20210303
  Receipt Date: 20210303
  Transmission Date: 20210420
  Serious: Yes (Death)
  Sender: FDA-Public Use
  Company Number: JP-EISAI MEDICAL RESEARCH-EC-2021-088814

PATIENT
  Age: 72 Year
  Sex: Female

DRUGS (1)
  1. LENVATINIB [Suspect]
     Active Substance: LENVATINIB
     Indication: HEPATOCELLULAR CARCINOMA
     Dosage: DOSE AND FREQUENCY UNKNOWN
     Route: 048

REACTIONS (5)
  - Liver disorder [Unknown]
  - Weight decreased [Unknown]
  - Jaundice [Unknown]
  - Decreased appetite [Unknown]
  - Necrotising fasciitis [Fatal]
